FAERS Safety Report 8663424 (Version 3)
Quarter: 2012Q4

REPORT INFORMATION
  Report Type: 
  Country: CA (occurrence: CA)
  Receive Date: 20120713
  Receipt Date: 20121002
  Transmission Date: 20130627
  Serious: Yes (Other)
  Sender: FDA-Public Use
  Company Number: CA-PFIZER INC-2012166754

PATIENT
  Age: 60 Year
  Sex: Male
  Weight: 63.49 kg

DRUGS (7)
  1. EFFEXOR XR [Suspect]
     Indication: DIABETIC NEUROPATHY
     Dosage: 75 mg, 1x/day
     Dates: start: 2006, end: 20120605
  2. METFORMIN [Concomitant]
     Indication: DIABETES MELLITUS
     Dosage: 1000 mg (2), 2x/day
     Dates: start: 2002
  3. METFORMIN [Concomitant]
     Dosage: 1000 mg, UNK
  4. METFORMIN [Concomitant]
     Dosage: 500 mg, UNK
  5. CELEBREX [Concomitant]
     Indication: ARTHRITIS
     Dosage: UNK, 1x/day
     Dates: start: 2008
  6. LIPITOR [Concomitant]
     Indication: DIABETES MELLITUS
     Dosage: 400 mg, 1x/day
     Dates: start: 2002
  7. DIOVANE [Concomitant]
     Indication: DIABETES MELLITUS
     Dosage: UNK, 1x/day
     Dates: start: 2002

REACTIONS (15)
  - Thirst [Recovering/Resolving]
  - Flat affect [Recovering/Resolving]
  - Migraine [Recovering/Resolving]
  - Increased appetite [Recovering/Resolving]
  - Visual impairment [Recovering/Resolving]
  - Thinking abnormal [Recovering/Resolving]
  - Parkinson^s disease [Recovering/Resolving]
  - Withdrawal syndrome [Recovering/Resolving]
  - Off label use [Recovering/Resolving]
  - Hypertension [Recovering/Resolving]
  - Asthenia [Recovering/Resolving]
  - Decreased activity [Recovering/Resolving]
  - Weight increased [Recovering/Resolving]
  - Gastrooesophageal reflux disease [Recovering/Resolving]
  - Abdominal distension [Recovering/Resolving]
